FAERS Safety Report 15678350 (Version 1)
Quarter: 2018Q4

REPORT INFORMATION
  Report Type: Spontaneous
  Country: US (occurrence: US)
  Receive Date: 20181201
  Receipt Date: 20181201
  Transmission Date: 20190205
  Serious: No
  Sender: FDA-Public Use
  Company Number: US-TEVA-2018-US-978047

PATIENT
  Sex: Female

DRUGS (1)
  1. ESTRADIOL. [Suspect]
     Active Substance: ESTRADIOL
     Route: 067

REACTIONS (5)
  - Wrong technique in product usage process [Unknown]
  - Product administration error [Unknown]
  - Skin disorder [Unknown]
  - Hot flush [Unknown]
  - Night sweats [Unknown]
